FAERS Safety Report 5294967-X (Version None)
Quarter: 2007Q2

REPORT INFORMATION
  Report Type: 
  Country: None (occurrence: None)
  Receive Date: 20070412
  Receipt Date: 20070403
  Transmission Date: 20071010
  Serious: Yes (Other)
  Sender: FDA-Public Use
  Company Number: JP-ROCHE-487526

PATIENT
  Age: 61 Year
  Sex: Male

DRUGS (7)
  1. TICLOPIDINE HCL [Suspect]
     Indication: THROMBOSIS PROPHYLAXIS
     Route: 048
     Dates: start: 20050806, end: 20050816
  2. DIOVAN [Suspect]
     Indication: DRUG USE FOR UNKNOWN INDICATION
     Route: 048
  3. ASPIRIN [Concomitant]
  4. ITOROL [Concomitant]
  5. ATORVASTATIN CALCIUM [Concomitant]
  6. REBAMIPIDE [Concomitant]
  7. ISOSORBIDE DINITRATE [Concomitant]

REACTIONS (1)
  - TOXIC SKIN ERUPTION [None]
